FAERS Safety Report 20003551 (Version 2)
Quarter: 2021Q4

REPORT INFORMATION
  Report Type: Report from Study
  Country: US (occurrence: US)
  Receive Date: 20211028
  Receipt Date: 20211118
  Transmission Date: 20220303
  Serious: Yes (Death)
  Sender: FDA-Public Use
  Company Number: US-UCBSA-2021050007

PATIENT
  Age: 77 Year
  Sex: Male
  Weight: 110 kg

DRUGS (1)
  1. LACOSAMIDE [Suspect]
     Active Substance: LACOSAMIDE
     Indication: Seizure
     Dosage: 50 MILLIGRAM, 2X/DAY (BID)
     Dates: end: 20210308

REACTIONS (2)
  - Encephalomalacia [Fatal]
  - Hospice care [Unknown]

NARRATIVE: CASE EVENT DATE: 20211008
